FAERS Safety Report 9091835 (Version 1)
Quarter: 2013Q1

REPORT INFORMATION
  Report Type: Report from Study
  Country: US (occurrence: US)
  Receive Date: 20130131
  Receipt Date: 20130131
  Transmission Date: 20140127
  Serious: No
  Sender: FDA-Public Use
  Company Number: US-ABBOTT-12P-163-1006821-00

PATIENT
  Sex: Female
  Weight: 108.96 kg

DRUGS (2)
  1. HUMIRA [Suspect]
     Indication: PSORIATIC ARTHROPATHY
     Route: 058
     Dates: start: 201101, end: 201103
  2. UNKNOWN MEDICATION [Concomitant]
     Indication: HYPERTENSION
     Dates: start: 2010

REACTIONS (3)
  - Skin exfoliation [Recovered/Resolved]
  - Rash [Recovered/Resolved]
  - Psoriatic arthropathy [Unknown]
